FAERS Safety Report 20334390 (Version 1)
Quarter: 2022Q1

REPORT INFORMATION
  Report Type: Spontaneous
  Country: DE (occurrence: DE)
  Receive Date: 20220114
  Receipt Date: 20220114
  Transmission Date: 20220423
  Serious: No
  Sender: FDA-Public Use
  Company Number: None

PATIENT
  Age: 62 Year
  Sex: Female
  Weight: 60 kg

DRUGS (6)
  1. EZETIMIBE [Suspect]
     Active Substance: EZETIMIBE
     Indication: Product used for unknown indication
     Dosage: 10 MILLIGRAM, QD
     Route: 048
     Dates: start: 202101
  2. ATORVASTATIN CALCIUM [Suspect]
     Active Substance: ATORVASTATIN CALCIUM
     Indication: Product used for unknown indication
     Dosage: 40 MILLIGRAM
     Route: 048
     Dates: start: 20180707
  3. ASPIRIN [Concomitant]
     Active Substance: ASPIRIN
     Indication: Product used for unknown indication
     Dosage: 100 MILLIGRAM, QD
     Route: 065
     Dates: start: 20180727
  4. Bisoprolol Sandoz 5 MG [Concomitant]
     Indication: Product used for unknown indication
     Dosage: 5 MILLIGRAM
     Route: 065
     Dates: start: 20180727, end: 20210411
  5. Spironolacton AL 50 [Concomitant]
     Indication: Product used for unknown indication
     Dosage: 50 MILLIGRAM, QD
     Route: 048
     Dates: start: 20180727
  6. VAXZEVRIA [Suspect]
     Active Substance: AZD-1222
     Indication: COVID-19 immunisation
     Dosage: UNK
     Route: 065
     Dates: start: 20210411, end: 20210411

REACTIONS (2)
  - Neuralgia [Not Recovered/Not Resolved]
  - Myalgia [Not Recovered/Not Resolved]
